FAERS Safety Report 21524949 (Version 1)
Quarter: 2022Q4

REPORT INFORMATION
  Report Type: Spontaneous
  Country: US (occurrence: US)
  Receive Date: 20221030
  Receipt Date: 20221030
  Transmission Date: 20230113
  Serious: Yes (Death)
  Sender: FDA-Public Use
  Company Number: None

PATIENT
  Age: 28 Year
  Sex: Female

DRUGS (7)
  1. ALPRAZOLAM [Suspect]
     Active Substance: ALPRAZOLAM
     Indication: Product used for unknown indication
  2. FENTANYL [Concomitant]
     Active Substance: FENTANYL
  3. HEROIN [Concomitant]
     Active Substance: DIAMORPHINE
  4. ACETYLFENTANYL [Concomitant]
     Active Substance: ACETYLFENTANYL
  5. VALERYL FENTANYL [Concomitant]
     Active Substance: VALERYL FENTANYL
  6. COCAINE [Concomitant]
     Active Substance: COCAINE
  7. DIPHENHYDRAMINE [Concomitant]
     Active Substance: DIPHENHYDRAMINE

REACTIONS (1)
  - Toxicity to various agents [Fatal]
